FAERS Safety Report 21105652 (Version 2)
Quarter: 2022Q3

REPORT INFORMATION
  Report Type: Spontaneous
  Country: US (occurrence: US)
  Receive Date: 20220720
  Receipt Date: 20220818
  Transmission Date: 20221026
  Serious: Yes (Other)
  Sender: FDA-Public Use
  Company Number: US-PFIZER INC-2017334313

PATIENT
  Age: 13 Year
  Sex: Male

DRUGS (2)
  1. BENEFIX [Suspect]
     Active Substance: COAGULATION FACTOR IX RECOMBINANT HUMAN\ISOPROPYL ALCOHOL
     Indication: Haemorrhage
     Dosage: 1000 IU, AS NEEDED (INJECT 1 VIAL (1000 UNITS +/- 10%) FOR MINOR BLEEDS)
     Route: 041
     Dates: start: 20191029
  2. BENEFIX [Suspect]
     Active Substance: COAGULATION FACTOR IX RECOMBINANT HUMAN\ISOPROPYL ALCOHOL
     Indication: Haemorrhage
     Dosage: 2000 IU, AS NEEDED (VIALS (2000 UNITS +/- 10%) DAILY AS NEEDED FOR MAJOR BLEEDS)
     Route: 041

REACTIONS (1)
  - Haemorrhage [Unknown]
